FAERS Safety Report 4415854-2 (Version None)
Quarter: 2004Q3

REPORT INFORMATION
  Report Type: 
  Country: None (occurrence: None)
  Receive Date: 20040730
  Receipt Date: 20040722
  Transmission Date: 20050211
  Serious: Yes (Hospitalization)
  Sender: FDA-Public Use
  Company Number: 1515-068

PATIENT
  Age: 58 Year
  Sex: Male

DRUGS (6)
  1. VENOFER [Suspect]
     Indication: ANAEMIA
     Dosage: 100-200 MG IV
     Route: 042
     Dates: start: 20030328, end: 20031103
  2. ARANESP (DARBEPOIETIN ALFA) [Concomitant]
  3. VITAMIN C [Concomitant]
  4. TENORDINE (ATENOLOL) [Concomitant]
  5. TANAKAN (GINKO BILOBA) [Concomitant]
  6. ALFA-TOCOPHEROL [Concomitant]

REACTIONS (4)
  - ANAEMIA [None]
  - CYTOLYTIC HEPATITIS [None]
  - HEPATIC STEATOSIS [None]
  - SERUM FERRITIN INCREASED [None]
